FAERS Safety Report 6256288-8 (Version None)
Quarter: 2009Q3

REPORT INFORMATION
  Report Type: 
  Country: None (occurrence: None)
  Receive Date: 20090706
  Receipt Date: 20090626
  Transmission Date: 20100115
  Serious: Yes (Hospitalization)
  Sender: FDA-Public Use
  Company Number: DE-BAYER-200817960GPV

PATIENT
  Age: 38 Year
  Sex: Female
  Weight: 47 kg

DRUGS (6)
  1. MIRENA [Suspect]
     Indication: DYSMENORRHOEA
     Dosage: TOTAL DAILY DOSE: 20 ?G
     Route: 015
     Dates: start: 20071106, end: 20080401
  2. NOVALGIN [Concomitant]
     Indication: DRUG USE FOR UNKNOWN INDICATION
  3. DICLAC 50 [Concomitant]
     Indication: DRUG USE FOR UNKNOWN INDICATION
  4. LACTOPALM [Concomitant]
     Indication: DRUG USE FOR UNKNOWN INDICATION
  5. ASCO TOP [Concomitant]
     Indication: DRUG USE FOR UNKNOWN INDICATION
  6. TYROSUR GEL [Concomitant]
     Indication: DRUG USE FOR UNKNOWN INDICATION

REACTIONS (26)
  - ABDOMINAL PAIN [None]
  - ACNE [None]
  - BREAST PAIN [None]
  - BURNING SENSATION [None]
  - DRY EYE [None]
  - DYSMENORRHOEA [None]
  - ECZEMA [None]
  - EYE IRRITATION [None]
  - EYE PAIN [None]
  - FUNGAL INFECTION [None]
  - GINGIVAL PAIN [None]
  - GINGIVITIS [None]
  - MIGRAINE [None]
  - MUSCLE SPASMS [None]
  - NIPPLE PAIN [None]
  - OEDEMA PERIPHERAL [None]
  - OVARIAN CYST [None]
  - OVULATION PAIN [None]
  - PAIN [None]
  - PAIN IN EXTREMITY [None]
  - PRURITUS [None]
  - SKIN BURNING SENSATION [None]
  - SKIN DISORDER [None]
  - THELITIS [None]
  - UTERINE LEIOMYOMA [None]
  - VAGINAL DISCHARGE [None]
